FAERS Safety Report 7618935-5 (Version None)
Quarter: 2011Q3

REPORT INFORMATION
  Report Type: 
  Country: None (occurrence: None)
  Receive Date: 20110718
  Receipt Date: 20110714
  Transmission Date: 20111222
  Serious: Yes (Hospitalization)
  Sender: FDA-Public Use
  Company Number: NZ-PFIZER INC-2011149032

PATIENT
  Age: 67 Year
  Sex: Female

DRUGS (2)
  1. VARENICLINE TARTRATE [Suspect]
     Dosage: UNK
  2. FENTANYL [Interacting]
     Dosage: UNK

REACTIONS (5)
  - DRUG INTERACTION [None]
  - ABDOMINAL PAIN UPPER [None]
  - STRESS [None]
  - FLATULENCE [None]
  - CONSTIPATION [None]
